FAERS Safety Report 10569090 (Version 2)
Quarter: 2014Q4

REPORT INFORMATION
  Report Type: Spontaneous
  Country: IT (occurrence: IT)
  Receive Date: 20141106
  Receipt Date: 20141215
  Transmission Date: 20150529
  Serious: Yes (Hospitalization)
  Sender: FDA-Public Use
  Company Number: IT-TEVA-520320ISR

PATIENT
  Age: 65 Year
  Sex: Female
  Weight: 85 kg

DRUGS (8)
  1. TRIMETON [Concomitant]
     Active Substance: CHLORPHENIRAMINE MALEATE
     Dosage: 10 MILLIGRAM DAILY;
     Route: 042
  2. CARBOPLATINO TEVA [Suspect]
     Active Substance: CARBOPLATIN
     Indication: ENDOMETRIAL CANCER
     Dosage: 550 MILLIGRAM DAILY;
     Route: 041
     Dates: start: 20141030, end: 20141030
  3. ZANTAC [Concomitant]
     Active Substance: RANITIDINE HYDROCHLORIDE
     Dosage: 50 MILLIGRAM DAILY;
     Route: 042
  4. ACEQUIN [Concomitant]
     Route: 048
  5. SODIO  CLORURO BAXTER [Concomitant]
     Dosage: 600 ML DAILY;
  6. SOLDESAM [Concomitant]
     Active Substance: DEXAMETHASONE
     Dosage: 20 MILLIGRAM DAILY;
     Route: 042
  7. ZOFRAN 8 MG [Concomitant]
     Dosage: 8 MILLIGRAM DAILY;
     Route: 048
  8. DUROGESIC 50MCG/H [Concomitant]
     Dosage: 50 MICROGRAM DAILY;
     Route: 062

REACTIONS (3)
  - Syncope [Recovered/Resolved]
  - Hypotension [Recovered/Resolved]
  - Erythema [Recovered/Resolved]

NARRATIVE: CASE EVENT DATE: 20141030
